FAERS Safety Report 6940936-0 (Version None)
Quarter: 2010Q3

REPORT INFORMATION
  Report Type: 
  Country: None (occurrence: None)
  Receive Date: 20100825
  Receipt Date: 20100819
  Transmission Date: 20110219
  Serious: Yes (Hospitalization, Other)
  Sender: FDA-Public Use
  Company Number: A0812287A

PATIENT
  Sex: Female

DRUGS (5)
  1. TYKERB [Suspect]
     Dosage: 1250MG UNKNOWN
     Route: 048
     Dates: start: 20090914, end: 20100801
  2. XELODA [Suspect]
     Indication: PRODUCT USED FOR UNKNOWN INDICATION
     Route: 065
  3. MINOCYCLINE HCL [Concomitant]
  4. TAXOL [Concomitant]
     Route: 065
  5. HERCEPTIN [Concomitant]
     Route: 065

REACTIONS (6)
  - BREAST CANCER [None]
  - DEHYDRATION [None]
  - DIARRHOEA [None]
  - RASH ERYTHEMATOUS [None]
  - SKIN DISCOLOURATION [None]
  - TANNING [None]
